FAERS Safety Report 25986130 (Version 1)
Quarter: 2025Q4

REPORT INFORMATION
  Report Type: Spontaneous
  Country: EU (occurrence: EU)
  Receive Date: 20251031
  Receipt Date: 20251031
  Transmission Date: 20260119
  Serious: Yes (Hospitalization, Other)
  Sender: CELLTRION
  Company Number: None

PATIENT

DRUGS (2)
  1. RITUXIMAB [Suspect]
     Active Substance: RITUXIMAB
     Indication: Eosinophilic granulomatosis with polyangiitis
     Dosage: UNK
     Route: 042
     Dates: start: 2012
  2. IBUPROFEN [Suspect]
     Active Substance: IBUPROFEN
     Indication: Catarrh
     Route: 048
     Dates: start: 20250703, end: 20250709

REACTIONS (2)
  - Agranulocytosis [Recovered/Resolved]
  - Intentional product use issue [Unknown]

NARRATIVE: CASE EVENT DATE: 20250705
